FAERS Safety Report 17188010 (Version 1)
Quarter: 2019Q4

REPORT INFORMATION
  Report Type: Report from Study
  Country: IT (occurrence: IT)
  Receive Date: 20191221
  Receipt Date: 20191221
  Transmission Date: 20200122
  Serious: Yes (Other)
  Sender: FDA-Public Use
  Company Number: IT-ACCORD-166497

PATIENT
  Age: 87 Year
  Sex: Male

DRUGS (8)
  1. TRITTICO [Concomitant]
     Active Substance: TRAZODONE HYDROCHLORIDE
  2. SINVACOR [Concomitant]
     Active Substance: SIMVASTATIN
  3. ADENURIC [Concomitant]
     Active Substance: FEBUXOSTAT
  4. ESKIM [Concomitant]
     Active Substance: OMEGA-3 FATTY ACIDS
  5. CARDIOASPIRIN [Concomitant]
     Active Substance: ASPIRIN
  6. TALOFEN [Concomitant]
     Active Substance: PROMAZINE HYDROCHLORIDE
  7. INTRAFER [Concomitant]
  8. AMLODIPINE [Suspect]
     Active Substance: AMLODIPINE BESYLATE
     Indication: HYPERTENSION
     Route: 048
     Dates: start: 20181102, end: 20191102

REACTIONS (2)
  - Hypertensive crisis [Recovering/Resolving]
  - Drug ineffective [Unknown]

NARRATIVE: CASE EVENT DATE: 20191102
